FAERS Safety Report 9609653 (Version 1)
Quarter: 2013Q4

REPORT INFORMATION
  Report Type: Spontaneous
  Country: US (occurrence: US)
  Receive Date: 20131009
  Receipt Date: 20131009
  Transmission Date: 20140711
  Serious: Yes (Other)
  Sender: FDA-Public Use
  Company Number: US-NAPPMUNDI-USA-2012-0095553

PATIENT
  Age: 50 Year
  Sex: Female

DRUGS (4)
  1. BUTRANS [Suspect]
     Indication: SPINAL PAIN
     Dosage: 10 MCG/HR, UNK
     Route: 062
     Dates: start: 20121015, end: 20121101
  2. LISINOPRIL [Concomitant]
     Indication: HYPERTENSION
     Dosage: 20 MG, HS
     Route: 048
     Dates: start: 201204
  3. PERCOCET                           /00867901/ [Concomitant]
     Indication: BREAKTHROUGH PAIN
     Dosage: 10/325MG
     Route: 048
  4. XANAX [Concomitant]
     Indication: INSOMNIA
     Dosage: 2 MG, HS
     Route: 048

REACTIONS (6)
  - Chest pain [Unknown]
  - Dyspnoea [Unknown]
  - Dizziness [Recovered/Resolved]
  - Gait disturbance [Unknown]
  - Hypoaesthesia [Unknown]
  - Drug ineffective [Recovered/Resolved]
